FAERS Safety Report 20181004 (Version 2)
Quarter: 2022Q1

REPORT INFORMATION
  Report Type: Report from Study
  Country: IE (occurrence: IE)
  Receive Date: 20211214
  Receipt Date: 20220122
  Transmission Date: 20220423
  Serious: Yes (Death, Hospitalization, Other)
  Sender: FDA-Public Use
  Company Number: IE-AMGEN-IRLSL2021163468

PATIENT
  Age: 76 Year
  Sex: Male

DRUGS (5)
  1. ARANESP [Suspect]
     Active Substance: DARBEPOETIN ALFA
     Indication: Product used for unknown indication
     Dosage: 30 MICROGRAM
     Route: 058
     Dates: start: 20200501
  2. FOLIC ACID [Concomitant]
     Active Substance: FOLIC ACID
     Dosage: 5 MILLIGRAM, QD
     Route: 050
  3. TAMSULOSIN HYDROCHLORIDE [Concomitant]
     Active Substance: TAMSULOSIN HYDROCHLORIDE
     Dosage: 400 MILLIGRAM, QD
     Route: 050
  4. DIAGLYC [Concomitant]
     Dosage: 30 MILLIGRAM, QD
     Route: 050
  5. PANTOPRAZOLE [Concomitant]
     Active Substance: PANTOPRAZOLE
     Dosage: 40 MILLIGRAM, QD
     Route: 050

REACTIONS (4)
  - Death [Fatal]
  - Sepsis [Not Recovered/Not Resolved]
  - Unevaluable event [Recovered/Resolved]
  - Rehabilitation therapy [Not Recovered/Not Resolved]

NARRATIVE: CASE EVENT DATE: 20210101
